FAERS Safety Report 9525048 (Version 1)
Quarter: 2013Q3

REPORT INFORMATION
  Report Type: Spontaneous
  Country: US (occurrence: US)
  Receive Date: 20130916
  Receipt Date: 20130916
  Transmission Date: 20140515
  Serious: No
  Sender: FDA-Public Use
  Company Number: US-009507513-1308USA013481

PATIENT
  Sex: Male

DRUGS (4)
  1. ASMANEX TWISTHALER [Suspect]
     Indication: ASTHMA
     Dosage: 1 DF, BID
     Route: 055
     Dates: start: 201208
  2. SINGULAIR [Suspect]
     Route: 048
  3. ZYRTEC [Concomitant]
  4. FLUTICASONE [Concomitant]

REACTIONS (2)
  - Sleep terror [Unknown]
  - Abnormal dreams [Unknown]
